FAERS Safety Report 17997926 (Version 3)
Quarter: 2021Q2

REPORT INFORMATION
  Report Type: Spontaneous
  Country: NO (occurrence: NO)
  Receive Date: 20200709
  Receipt Date: 20210524
  Transmission Date: 20210717
  Serious: Yes (Other)
  Sender: FDA-Public Use
  Company Number: NO-AMGEN-NORSP2020108666

PATIENT
  Age: 3 Month
  Sex: Female

DRUGS (3)
  1. TEGRETOL XR [Suspect]
     Active Substance: CARBAMAZEPINE
     Indication: FOETAL EXPOSURE DURING PREGNANCY
     Dosage: 300 MILLIGRAM, BID (MATERNAL DOSE)
     Route: 064
  2. TEGRETOL XR [Suspect]
     Active Substance: CARBAMAZEPINE
     Indication: EXPOSURE VIA BREAST MILK
     Dosage: 300 MILLIGRAM, BID (MATERNAL DOSE)
     Route: 063
  3. AIMOVIG [Suspect]
     Active Substance: ERENUMAB-AOOE
     Indication: FOETAL EXPOSURE DURING PREGNANCY
     Dosage: 70 MILLIGRAM, QMO (MATERNAL DOSE)
     Route: 064

REACTIONS (3)
  - Exposure via breast milk [Unknown]
  - Foetal exposure during pregnancy [Unknown]
  - Premature baby [Unknown]

NARRATIVE: CASE EVENT DATE: 20190710
